FAERS Safety Report 9246483 (Version 8)
Quarter: 2015Q2

REPORT INFORMATION
  Report Type: Report from Study
  Country: BR (occurrence: BR)
  Receive Date: 20130422
  Receipt Date: 20150427
  Transmission Date: 20150821
  Serious: Yes (Death, Hospitalization, Other)
  Sender: FDA-Public Use
  Company Number: BR-ROCHE-1187459

PATIENT
  Age: 69 Year
  Sex: Female
  Weight: 86 kg

DRUGS (16)
  1. LEFLUNOMIDE. [Concomitant]
     Active Substance: LEFLUNOMIDE
  2. ACETYLSALICYLIC ACID [Concomitant]
     Active Substance: ASPIRIN
  3. CARVEDILOL. [Concomitant]
     Active Substance: CARVEDILOL
  4. FUROSEMIDE. [Concomitant]
     Active Substance: FUROSEMIDE
  5. LOSARTAN [Concomitant]
     Active Substance: LOSARTAN
  6. TRAMADOL [Concomitant]
     Active Substance: TRAMADOL
  7. AMLODIPINE [Concomitant]
     Active Substance: AMLODIPINE BESYLATE
  8. MABTHERA [Suspect]
     Active Substance: RITUXIMAB
     Indication: RHEUMATOID ARTHRITIS
     Route: 042
     Dates: start: 20120413, end: 20120430
  9. MABTHERA [Suspect]
     Active Substance: RITUXIMAB
     Dosage: RECENT DOSE RECEIVED ON 03-DEC-2013
     Route: 042
     Dates: start: 20130312
  10. RIVOTRIL [Concomitant]
     Active Substance: CLONAZEPAM
  11. PREDNISONE. [Concomitant]
     Active Substance: PREDNISONE
  12. MABTHERA [Suspect]
     Active Substance: RITUXIMAB
     Dosage: LAST INFUSION DATES: 18/DEC2013, 26/JUN/2014, 14/JUL/2014
     Route: 042
     Dates: start: 20120326, end: 20140714
  13. PURAN [Concomitant]
     Active Substance: LEVOTHYROXINE SODIUM
  14. AMPICILLIN [Concomitant]
     Active Substance: AMPICILLIN
  15. GABAPENTIN. [Concomitant]
     Active Substance: GABAPENTIN
  16. PARACETAMOL [Concomitant]
     Active Substance: ACETAMINOPHEN

REACTIONS (11)
  - Lung infection [Not Recovered/Not Resolved]
  - Pulmonary oedema [Unknown]
  - Intestinal haemorrhage [Fatal]
  - Rib fracture [Recovered/Resolved]
  - Gastric disorder [Not Recovered/Not Resolved]
  - Pneumonia [Unknown]
  - Haemoptysis [Not Recovered/Not Resolved]
  - Arthralgia [Unknown]
  - Cerebrovascular accident [Recovering/Resolving]
  - Abdominal pain [Unknown]
  - Pulmonary embolism [Fatal]

NARRATIVE: CASE EVENT DATE: 201312
